FAERS Safety Report 22770616 (Version 6)
Quarter: 2024Q2

REPORT INFORMATION
  Report Type: Report from Study
  Country: KR (occurrence: KR)
  Receive Date: 20230801
  Receipt Date: 20240527
  Transmission Date: 20240715
  Serious: Yes (Hospitalization, Other)
  Sender: FDA-Public Use
  Company Number: KR-002147023-NVSC2023KR162902

PATIENT
  Age: 47 Year
  Sex: Female
  Weight: 60.3 kg

DRUGS (8)
  1. SCEMBLIX [Suspect]
     Active Substance: ASCIMINIB HYDROCHLORIDE
     Indication: Philadelphia positive chronic myeloid leukaemia
     Dosage: 40 MG, BID (80 MG)
     Route: 048
     Dates: start: 20230410, end: 20230613
  2. SCEMBLIX [Suspect]
     Active Substance: ASCIMINIB HYDROCHLORIDE
     Dosage: 40 MG, QD
     Route: 048
     Dates: start: 20230714, end: 20230721
  3. SCEMBLIX [Suspect]
     Active Substance: ASCIMINIB HYDROCHLORIDE
     Dosage: 40 MG, QD
     Route: 048
     Dates: start: 20230725, end: 20240227
  4. PREDNISOLONE [Concomitant]
     Active Substance: PREDNISOLONE
     Indication: Prophylaxis
     Dosage: 5 MG, BID
     Route: 048
     Dates: start: 20230718, end: 20230730
  5. PREDNISOLONE [Concomitant]
     Active Substance: PREDNISOLONE
     Dosage: 5 MG, QD
     Route: 048
     Dates: start: 20230731, end: 20230803
  6. PREDNISOLONE [Concomitant]
     Active Substance: PREDNISOLONE
     Dosage: 5 MG, PRN
     Route: 048
     Dates: start: 20230804, end: 20230824
  7. METHYLPREDNISOLONE [Concomitant]
     Active Substance: METHYLPREDNISOLONE
     Indication: Prophylaxis
     Dosage: 12 MG, QD
     Route: 048
     Dates: start: 20230711, end: 20230714
  8. METHYLPREDNISOLONE [Concomitant]
     Active Substance: METHYLPREDNISOLONE
     Dosage: 8 MG, QD
     Route: 048
     Dates: start: 20230715, end: 20230717

REACTIONS (4)
  - Proctitis [Recovered/Resolved]
  - Pyrexia [Recovered/Resolved]
  - Cytopenia [Recovered/Resolved]
  - Thrombocytopenia [Recovered/Resolved]

NARRATIVE: CASE EVENT DATE: 20230613
